FAERS Safety Report 4617825-X (Version None)
Quarter: 2005Q1

REPORT INFORMATION
  Report Type: 
  Country: None (occurrence: None)
  Receive Date: 20050324
  Receipt Date: 20050113
  Transmission Date: 20050727
  Serious: Yes (Other)
  Sender: FDA-Public Use
  Company Number: US-GLAXOSMITHKLINE-A0540543A

PATIENT
  Age: 70 Year
  Sex: Female
  Weight: 63.6 kg

DRUGS (3)
  1. ADVAIR DISKUS 100/50 [Suspect]
     Indication: ASTHMA
     Dosage: 1PUFF TWICE PER DAY
     Route: 055
     Dates: end: 20050110
  2. COZAAR [Concomitant]
     Dosage: 50MG PER DAY
  3. SINGULAIR [Concomitant]
     Dosage: 10MG PER DAY

REACTIONS (4)
  - BREAST TENDERNESS [None]
  - DIZZINESS [None]
  - PAIN IN EXTREMITY [None]
  - SUPRAVENTRICULAR TACHYCARDIA [None]
